FAERS Safety Report 17856252 (Version 2)
Quarter: 2020Q2

REPORT INFORMATION
  Report Type: Spontaneous
  Country: FR (occurrence: FR)
  Receive Date: 20200603
  Receipt Date: 20200608
  Transmission Date: 20200714
  Serious: Yes (Hospitalization, Other)
  Sender: FDA-Public Use
  Company Number: FR-BRISTOL-MYERS SQUIBB COMPANY-BMS-2020-042629

PATIENT
  Age: 52 Year
  Sex: Male
  Weight: 70 kg

DRUGS (11)
  1. XARELTO [Interacting]
     Active Substance: RIVAROXABAN
     Indication: ACUTE CORONARY SYNDROME
     Route: 048
     Dates: start: 20190214, end: 20190224
  2. KARDEGIC [Interacting]
     Active Substance: ASPIRIN DL-LYSINE
     Indication: ACUTE CORONARY SYNDROME
     Dosage: 1 DOSAGE FORM DAILY
     Route: 048
     Dates: start: 20190214, end: 20190224
  3. HUMALOG [Concomitant]
     Active Substance: INSULIN LISPRO
     Indication: PRODUCT USED FOR UNKNOWN INDICATION
     Route: 065
  4. LANTUS [Concomitant]
     Active Substance: INSULIN GLARGINE
     Indication: PRODUCT USED FOR UNKNOWN INDICATION
     Route: 065
  5. ELIQUIS [Suspect]
     Active Substance: APIXABAN
     Indication: ACUTE CORONARY SYNDROME
     Dosage: 2 DOSAGE FORM DAILY
     Route: 048
     Dates: start: 20190214, end: 20190224
  6. PLAVIX [Interacting]
     Active Substance: CLOPIDOGREL BISULFATE
     Indication: ACUTE CORONARY SYNDROME
     Dosage: 75 MILLIGRAM DAILY
     Route: 048
     Dates: start: 20190214, end: 20190224
  7. BISOPROLOL [Concomitant]
     Active Substance: BISOPROLOL
     Indication: PRODUCT USED FOR UNKNOWN INDICATION
     Route: 065
  8. TAHOR [Concomitant]
     Active Substance: ATORVASTATIN CALCIUM
     Indication: PRODUCT USED FOR UNKNOWN INDICATION
     Dosage: UNK
     Route: 065
  9. UVEDOSE [Concomitant]
     Active Substance: CHOLECALCIFEROL
     Indication: PRODUCT USED FOR UNKNOWN INDICATION
     Route: 065
  10. RAMIPRIL. [Concomitant]
     Active Substance: RAMIPRIL
     Indication: PRODUCT USED FOR UNKNOWN INDICATION
     Route: 065
  11. UROREC [Concomitant]
     Active Substance: SILODOSIN
     Indication: PRODUCT USED FOR UNKNOWN INDICATION
     Route: 065

REACTIONS (6)
  - Intra-abdominal haematoma [Recovered/Resolved with Sequelae]
  - Renal haematoma [Recovered/Resolved with Sequelae]
  - Intentional product use issue [Unknown]
  - Shock haemorrhagic [Recovered/Resolved with Sequelae]
  - Potentiating drug interaction [Recovered/Resolved]
  - Off label use [Unknown]

NARRATIVE: CASE EVENT DATE: 20190224
